FAERS Safety Report 25850773 (Version 1)
Quarter: 2025Q3

REPORT INFORMATION
  Report Type: Spontaneous
  Country: US (occurrence: US)
  Receive Date: 20250926
  Receipt Date: 20250926
  Transmission Date: 20251020
  Serious: No
  Sender: ALEXION PHARMACEUTICALS
  Company Number: US-ASTRAZENECA-202509USA018976US

PATIENT
  Age: 26 Year
  Sex: Male

DRUGS (1)
  1. VOYDEYA [Suspect]
     Active Substance: DANICOPAN
     Route: 065

REACTIONS (1)
  - Haemoglobin abnormal [Unknown]
